FAERS Safety Report 25060341 (Version 2)
Quarter: 2025Q2

REPORT INFORMATION
  Report Type: Spontaneous
  Country: US (occurrence: US)
  Receive Date: 20250310
  Receipt Date: 20250522
  Transmission Date: 20250717
  Serious: No
  Sender: SANOFI AVENTIS
  Company Number: US-SA-2025SA069815

PATIENT
  Age: 68 Year
  Sex: Female

DRUGS (40)
  1. REZUROCK [Suspect]
     Active Substance: BELUMOSUDIL
     Indication: Graft versus host disease
     Dosage: 200 MG, QD
     Route: 048
     Dates: start: 20250304
  2. REZUROCK [Suspect]
     Active Substance: BELUMOSUDIL
     Dosage: 200 MG, BID
     Route: 048
  3. ELIQUIS [Concomitant]
     Active Substance: APIXABAN
  4. ATOVAQUONE [Concomitant]
     Active Substance: ATOVAQUONE
  5. ATOVAQUONE [Concomitant]
     Active Substance: ATOVAQUONE
  6. AZITHROMYCIN [Concomitant]
     Active Substance: AZITHROMYCIN
  7. AZITHROMYCIN [Concomitant]
     Active Substance: AZITHROMYCIN
  8. CALCIUM CITRATE [Concomitant]
     Active Substance: CALCIUM CITRATE
  9. CALCIUM CITRATE [Concomitant]
     Active Substance: CALCIUM CITRATE
  10. VITAMIN D [Concomitant]
     Active Substance: VITAMIN D NOS
  11. CYANOCOBALAMIN [Concomitant]
     Active Substance: CYANOCOBALAMIN
  12. CYANOCOBALAMIN [Concomitant]
     Active Substance: CYANOCOBALAMIN
  13. FAMOTIDINE [Concomitant]
     Active Substance: FAMOTIDINE
  14. FOLIC ACID [Concomitant]
     Active Substance: FOLIC ACID
  15. FUROSEMIDE [Concomitant]
     Active Substance: FUROSEMIDE
  16. GABAPENTIN [Concomitant]
     Active Substance: GABAPENTIN
  17. PREVYMIS [Concomitant]
     Active Substance: LETERMOVIR
  18. MIRTAZAPINE [Concomitant]
     Active Substance: MIRTAZAPINE
  19. VITAMINS [Concomitant]
     Active Substance: VITAMINS
  20. OLANZAPINE [Concomitant]
     Active Substance: OLANZAPINE
  21. POSACONAZOLE [Concomitant]
     Active Substance: POSACONAZOLE
  22. POTASSIUM CHLORIDE [Concomitant]
     Active Substance: POTASSIUM CHLORIDE
  23. PREDNISONE [Concomitant]
     Active Substance: PREDNISONE
  24. PROCHLORPERAZINE [Concomitant]
     Active Substance: PROCHLORPERAZINE
  25. JAKAFI [Concomitant]
     Active Substance: RUXOLITINIB
  26. RAPAMUNE [Concomitant]
     Active Substance: SIROLIMUS
  27. VITAMIN B1 [Concomitant]
     Active Substance: THIAMINE HYDROCHLORIDE
  28. TRAMADOL [Concomitant]
     Active Substance: TRAMADOL
  29. TRAZODONE [Concomitant]
     Active Substance: TRAZODONE HYDROCHLORIDE
  30. STELARA [Concomitant]
     Active Substance: USTEKINUMAB
  31. VALACYCLOVIR [Concomitant]
     Active Substance: VALACYCLOVIR HYDROCHLORIDE
  32. TRINTELLIX [Concomitant]
     Active Substance: VORTIOXETINE HYDROBROMIDE
  33. DOXYCYCLINE [Concomitant]
     Active Substance: DOXYCYCLINE
  34. Hyclate [Concomitant]
  35. CALCIUM CITRATE [Concomitant]
     Active Substance: CALCIUM CITRATE
  36. BUMEX [Concomitant]
     Active Substance: BUMETANIDE
  37. POTASSIUM [Concomitant]
     Active Substance: POTASSIUM
  38. LEVAQUIN [Concomitant]
     Active Substance: LEVOFLOXACIN
  39. MINOCYCLINE [Concomitant]
     Active Substance: MINOCYCLINE HYDROCHLORIDE
  40. OMEPRAZOLE [Concomitant]
     Active Substance: OMEPRAZOLE

REACTIONS (3)
  - Swelling [Unknown]
  - Product prescribing issue [Unknown]
  - Inappropriate schedule of product administration [Unknown]
